FAERS Safety Report 5576573-2 (Version None)
Quarter: 2007Q4

REPORT INFORMATION
  Report Type: 
  Country: None (occurrence: None)
  Receive Date: 20071228
  Receipt Date: 20071015
  Transmission Date: 20080405
  Serious: No
  Sender: FDA-Public Use
  Company Number: A0687684A

PATIENT
  Age: 56 Year
  Sex: Male

DRUGS (2)
  1. FLOVENT [Suspect]
     Indication: ASTHMA
     Dosage: 2PUFF TWICE PER DAY
     Route: 055
     Dates: start: 20070901
  2. ALBUTEROL [Concomitant]

REACTIONS (4)
  - ANOREXIA [None]
  - HEADACHE [None]
  - MUSCLE SPASMS [None]
  - THIRST [None]
